FAERS Safety Report 20574578 (Version 1)
Quarter: 2022Q1

REPORT INFORMATION
  Report Type: Spontaneous
  Country: FR (occurrence: FR)
  Receive Date: 20220309
  Receipt Date: 20220309
  Transmission Date: 20220423
  Serious: Yes (Death, Other)
  Sender: FDA-Public Use
  Company Number: None

PATIENT
  Age: 35 Year
  Sex: Male
  Weight: 75 kg

DRUGS (5)
  1. DIAZEPAM [Suspect]
     Active Substance: DIAZEPAM
     Indication: Withdrawal syndrome
     Route: 048
     Dates: start: 20210913, end: 20210920
  2. METHADONE HYDROCHLORIDE [Suspect]
     Active Substance: METHADONE HYDROCHLORIDE
     Indication: Withdrawal syndrome
     Route: 048
     Dates: start: 20210915, end: 20210921
  3. TRIMEPRAZINE [Suspect]
     Active Substance: TRIMEPRAZINE
     Indication: Anxiolytic therapy
     Route: 048
     Dates: start: 20210913, end: 20210920
  4. CYAMEMAZINE [Suspect]
     Active Substance: CYAMEMAZINE
     Indication: Withdrawal syndrome
     Route: 048
     Dates: start: 20210915, end: 20210920
  5. COMIRNATY [Suspect]
     Active Substance: TOZINAMERAN
     Indication: COVID-19 immunisation
     Route: 030
     Dates: start: 20210915

REACTIONS (3)
  - Sedation [Recovered/Resolved]
  - Respiratory depression [Fatal]
  - Confusional state [Recovered/Resolved]

NARRATIVE: CASE EVENT DATE: 20210919
